FAERS Safety Report 15879509 (Version 1)
Quarter: 2019Q1

REPORT INFORMATION
  Report Type: Report from Study
  Country: RO (occurrence: RO)
  Receive Date: 20190128
  Receipt Date: 20190128
  Transmission Date: 20190417
  Serious: Yes (Hospitalization, Congenital Anomaly, Other)
  Sender: FDA-Public Use
  Company Number: RO-MYLANLABS-2019M1006947

PATIENT
  Sex: Female

DRUGS (2)
  1. ISENTRESS [Suspect]
     Active Substance: RALTEGRAVIR POTASSIUM
     Indication: PRODUCT USED FOR UNKNOWN INDICATION
     Dosage: UNK
     Route: 064
     Dates: start: 20151001
  2. ABACAVIR SULFATE/LAMIVUDINE [Suspect]
     Active Substance: ABACAVIR SULFATE\LAMIVUDINE
     Indication: PRODUCT USED FOR UNKNOWN INDICATION
     Dosage: UNK
     Route: 064
     Dates: start: 20151001

REACTIONS (11)
  - Lenticulostriatal vasculopathy [Unknown]
  - Cerebral calcification [Unknown]
  - Ectopic ureter [Unknown]
  - Patent ductus arteriosus [Unknown]
  - Apnoea [Unknown]
  - Pulmonary artery stenosis congenital [Unknown]
  - Hypoglycaemia [Unknown]
  - Microcephaly [Unknown]
  - Atrial septal defect [Unknown]
  - Poor feeding infant [Unknown]
  - Foetal exposure during pregnancy [Recovered/Resolved]
